FAERS Safety Report 4826510-0 (Version None)
Quarter: 2005Q4

REPORT INFORMATION
  Report Type: 
  Country: None (occurrence: None)
  Receive Date: 20051111
  Receipt Date: 20050811
  Transmission Date: 20060501
  Serious: Yes (Death, Disabling)
  Sender: FDA-Public Use
  Company Number: US-MERCK-0508USA02100

PATIENT
  Age: 63 Year
  Sex: Male
  Weight: 68 kg

DRUGS (6)
  1. VIOXX [Suspect]
     Indication: SHOULDER PAIN
     Route: 048
     Dates: start: 20020830, end: 20020901
  2. VIOXX [Suspect]
     Route: 048
     Dates: start: 20021130
  3. VIOXX [Suspect]
     Route: 048
     Dates: start: 20021130
  4. VIOXX [Suspect]
     Route: 048
     Dates: start: 20030630, end: 20030727
  5. CORTISPORIN CREAM [Concomitant]
     Route: 065
  6. FLEXERIL [Concomitant]
     Indication: PAIN
     Route: 048
     Dates: start: 20030325, end: 20030401

REACTIONS (5)
  - ACUTE MYOCARDIAL INFARCTION [None]
  - CORONARY ARTERY DISEASE [None]
  - DRUG INEFFECTIVE [None]
  - HYPERTENSION [None]
  - ROTATOR CUFF SYNDROME [None]
